FAERS Safety Report 24121419 (Version 3)
Quarter: 2024Q3

REPORT INFORMATION
  Report Type: Report from Study
  Country: AU (occurrence: None)
  Receive Date: 20240722
  Receipt Date: 20240829
  Transmission Date: 20241016
  Serious: Yes (Hospitalization, Other)
  Sender: ASTRAZENECA
  Company Number: 2024A163385

PATIENT
  Sex: Male

DRUGS (1)
  1. FASENRA [Suspect]
     Active Substance: BENRALIZUMAB
     Dosage: 30MG/ML EVERY EIGHT WEEKS
     Route: 058
     Dates: end: 20240604

REACTIONS (4)
  - Fall [Unknown]
  - Wrist fracture [Unknown]
  - Dizziness [Unknown]
  - Cardiac disorder [Unknown]
